FAERS Safety Report 5757417-2 (Version None)
Quarter: 2008Q2

REPORT INFORMATION
  Report Type: 
  Country: None (occurrence: None)
  Receive Date: 20080529
  Receipt Date: 20080515
  Transmission Date: 20081010
  Serious: Yes (Hospitalization)
  Sender: FDA-Public Use
  Company Number: E3810-01875-SPO-AU

PATIENT
  Age: 57 Year
  Sex: Female

DRUGS (2)
  1. RABEPRAZOLE SODIUM [Suspect]
     Indication: OESOPHAGEAL DISORDER
     Dosage: 20 MG, ORAL
     Route: 048
     Dates: start: 20061214, end: 20070218
  2. ADALAT OROS (NIFEDIPINE) [Concomitant]

REACTIONS (4)
  - HAEMOGLOBIN DECREASED [None]
  - NEPHRITIS INTERSTITIAL [None]
  - POST PROCEDURAL HAEMORRHAGE [None]
  - RENAL FAILURE [None]
